FAERS Safety Report 19693908 (Version 1)
Quarter: 2021Q3

REPORT INFORMATION
  Report Type: Report from Study
  Country: DE (occurrence: DE)
  Receive Date: 20210813
  Receipt Date: 20210813
  Transmission Date: 20211014
  Serious: Yes (Hospitalization)
  Sender: FDA-Public Use
  Company Number: DE-JNJFOC-20180937569

PATIENT
  Age: 5 Decade
  Sex: Female

DRUGS (5)
  1. SIMPONI [Suspect]
     Active Substance: GOLIMUMAB
     Indication: RHEUMATOID ARTHRITIS
     Route: 058
     Dates: start: 201609, end: 201706
  2. SIMPONI [Suspect]
     Active Substance: GOLIMUMAB
     Route: 058
     Dates: start: 201803
  3. SIMPONI [Suspect]
     Active Substance: GOLIMUMAB
     Route: 058
     Dates: start: 201709, end: 201802
  4. LEFLUNOMIDE. [Concomitant]
     Active Substance: LEFLUNOMIDE
     Route: 065
  5. LEFLUNOMIDE. [Concomitant]
     Active Substance: LEFLUNOMIDE
     Route: 065

REACTIONS (8)
  - Spinal osteoarthritis [Not Recovered/Not Resolved]
  - Back pain [Recovered/Resolved]
  - Chronic idiopathic pain syndrome [Not Recovered/Not Resolved]
  - Delusional disorder, somatic type [Unknown]
  - Sciatica [Recovered/Resolved]
  - Oral herpes [Recovered/Resolved]
  - Osteochondrosis [Not Recovered/Not Resolved]
  - Lumbar spinal stenosis [Not Recovered/Not Resolved]

NARRATIVE: CASE EVENT DATE: 20171115
